FAERS Safety Report 8760109 (Version 1)
Quarter: 2012Q4

REPORT INFORMATION
  Report Type: Spontaneous
  Country: US (occurrence: None)
  Receive Date: 20120828
  Receipt Date: 20120828
  Transmission Date: 20130627
  Serious: No
  Sender: FDA-Public Use
  Company Number: None

PATIENT
  Age: 79 Year
  Sex: Female
  Weight: 72.58 kg

DRUGS (1)
  1. RIVASTIGMINE TARTRATE [Suspect]
     Dates: start: 20120601

REACTIONS (3)
  - Dizziness [None]
  - Vomiting [None]
  - Impaired driving ability [None]
